FAERS Safety Report 5755690-8 (Version None)
Quarter: 2008Q2

REPORT INFORMATION
  Report Type: 
  Country: None (occurrence: None)
  Receive Date: 20080602
  Receipt Date: 20080527
  Transmission Date: 20081010
  Serious: Yes (Life-Threatening)
  Sender: FDA-Public Use
  Company Number: FR-ASTRAZENECA-2008CG00808

PATIENT
  Age: 20335 Day
  Sex: Male

DRUGS (8)
  1. HYTACAND [Suspect]
     Route: 048
  2. DIPRIVAN [Interacting]
     Route: 042
     Dates: start: 20080403, end: 20080403
  3. ISOPTIN [Interacting]
     Route: 048
     Dates: end: 20080403
  4. NIMBEX [Interacting]
     Route: 042
     Dates: start: 20080403, end: 20080403
  5. SUFENTANIL CITRATE [Interacting]
     Route: 042
     Dates: start: 20080403, end: 20080403
  6. AMITRIPTYLINE HCL [Interacting]
     Route: 048
  7. ALDACTONE [Interacting]
     Route: 048
  8. FRACTAL [Concomitant]

REACTIONS (4)
  - CIRCULATORY COLLAPSE [None]
  - DRUG INTERACTION [None]
  - HYPOTENSION [None]
  - SHOCK [None]
